FAERS Safety Report 17688662 (Version 2)
Quarter: 2025Q3

REPORT INFORMATION
  Report Type: Spontaneous
  Country: EU (occurrence: EU)
  Receive Date: 20200421
  Receipt Date: 20250711
  Transmission Date: 20251020
  Serious: Yes (Life-Threatening, Hospitalization, Disabling, Congenital Anomaly)
  Sender: JOHNSON AND JOHNSON
  Company Number: EU-MPA-2020-002230

PATIENT
  Age: 30 Year
  Sex: Male
  Weight: 115 kg

DRUGS (4)
  1. PALIPERIDONE PALMITATE [Suspect]
     Active Substance: PALIPERIDONE PALMITATE
     Indication: Delusion
     Dosage: 75 100 MG
     Route: 030
     Dates: start: 20180822
  2. PALIPERIDONE PALMITATE [Suspect]
     Active Substance: PALIPERIDONE PALMITATE
     Indication: Mental disorder
     Dosage: 150 MG 100 MG 75MG
     Route: 030
     Dates: start: 20190809
  3. PALIPERIDONE PALMITATE [Suspect]
     Active Substance: PALIPERIDONE PALMITATE
     Dosage: 150 MG 100 MG 75MG
     Route: 030
     Dates: start: 20190101
  4. ZUCLOPENTHIXOL [Suspect]
     Active Substance: ZUCLOPENTHIXOL
     Indication: Product used for unknown indication

REACTIONS (8)
  - Blood testosterone decreased [Not Recovered/Not Resolved]
  - Obesity [Not Recovered/Not Resolved]
  - Diabetes mellitus [Not Recovered/Not Resolved]
  - Increased appetite [Not Recovered/Not Resolved]
  - Hypotonia [Not Recovered/Not Resolved]
  - Weight increased [Not Recovered/Not Resolved]
  - Muscle twitching [Not Recovered/Not Resolved]
  - Pruritus [Not Recovered/Not Resolved]

NARRATIVE: CASE EVENT DATE: 20190901
